FAERS Safety Report 4382131-8 (Version None)
Quarter: 2004Q2

REPORT INFORMATION
  Report Type: 
  Country: None (occurrence: None)
  Receive Date: 20040621
  Receipt Date: 20031217
  Transmission Date: 20050107
  Serious: Yes (Hospitalization)
  Sender: FDA-Public Use
  Company Number: NUBN20030023

PATIENT
  Age: 0 Day
  Sex: Female

DRUGS (3)
  1. NUBAIN [Suspect]
     Indication: LABOUR PAIN
     Dosage: ENDO
     Dates: start: 20031217, end: 20031217
  2. PHENERGAN [Concomitant]
  3. ZOFRAN [Concomitant]

REACTIONS (1)
  - APNOEA [None]
